FAERS Safety Report 17822565 (Version 2)
Quarter: 2020Q3

REPORT INFORMATION
  Report Type: Spontaneous
  Country: US (occurrence: US)
  Receive Date: 20200526
  Receipt Date: 20200708
  Transmission Date: 20201102
  Serious: Yes (Hospitalization, Disabling, Other)
  Sender: FDA-Public Use
  Company Number: US-SA-2020SA133661

PATIENT

DRUGS (1)
  1. ZANTAC 75 [Suspect]
     Active Substance: RANITIDINE HYDROCHLORIDE

REACTIONS (8)
  - Pain [Unknown]
  - Physical disability [Unknown]
  - Renal cancer [Unknown]
  - Injury [Unknown]
  - Unevaluable event [Unknown]
  - Exposure via ingestion [Unknown]
  - Decreased interest [Unknown]
  - Emotional distress [Unknown]
